FAERS Safety Report 9750181 (Version 2)
Quarter: 2014Q1

REPORT INFORMATION
  Report Type: Spontaneous
  Country: US (occurrence: US)
  Receive Date: 20131212
  Receipt Date: 20140205
  Transmission Date: 20141002
  Serious: Yes (Hospitalization)
  Sender: FDA-Public Use
  Company Number: US-GLAXOSMITHKLINE-A1052081A

PATIENT
  Age: 31 Year
  Sex: Male

DRUGS (3)
  1. VENTOLIN [Suspect]
     Indication: BRONCHITIS
     Dosage: 2PUFF THREE TIMES PER DAY
     Route: 055
     Dates: start: 20131022, end: 20131024
  2. PREDNISONE [Concomitant]
  3. AZITHROMYCIN [Concomitant]

REACTIONS (22)
  - Hypersensitivity [Recovering/Resolving]
  - Respiratory arrest [Recovering/Resolving]
  - Endotracheal intubation [Recovering/Resolving]
  - Chest discomfort [Recovering/Resolving]
  - Urticaria [Recovering/Resolving]
  - Burn of internal organs [Recovering/Resolving]
  - Cough [Recovering/Resolving]
  - Wheezing [Recovering/Resolving]
  - Abdominal pain [Recovering/Resolving]
  - Hepatic pain [Recovering/Resolving]
  - Pulmonary function test abnormal [Recovering/Resolving]
  - Hepatic enzyme increased [Recovering/Resolving]
  - Jaundice [Recovering/Resolving]
  - Drug ineffective [Recovering/Resolving]
  - Off label use [Recovering/Resolving]
  - Nausea [Recovering/Resolving]
  - Pain in extremity [Recovering/Resolving]
  - Muscle tightness [Recovering/Resolving]
  - Bronchospasm [Recovering/Resolving]
  - Dyspnoea [Recovering/Resolving]
  - Medical induction of coma [Recovering/Resolving]
  - Gallbladder pain [Recovering/Resolving]
